FAERS Safety Report 11652967 (Version 7)
Quarter: 2016Q4

REPORT INFORMATION
  Report Type: Report from Study
  Country: AU (occurrence: AU)
  Receive Date: 20151022
  Receipt Date: 20161005
  Transmission Date: 20170206
  Serious: Yes (Hospitalization, Other)
  Sender: FDA-Public Use
  Company Number: AU-REGENERON PHARMACEUTICALS, INC.-2015-11467

PATIENT

DRUGS (2)
  1. EYLEA [Suspect]
     Active Substance: AFLIBERCEPT
     Indication: NEOVASCULAR AGE-RELATED MACULAR DEGENERATION
     Dosage: 2 MG, Q1MON, LEFT AND RIGHT EYE
     Route: 031
     Dates: start: 201311
  2. EYLEA [Suspect]
     Active Substance: AFLIBERCEPT
     Dosage: 2 MG, 4-6 WEEKLY
     Route: 031
     Dates: start: 201311

REACTIONS (8)
  - Malaise [Recovered/Resolved]
  - Pneumonia influenzal [Unknown]
  - Arrhythmia [Unknown]
  - Neovascular age-related macular degeneration [Unknown]
  - Visual impairment [Unknown]
  - Off label use [Unknown]
  - Gout [Unknown]
  - Heart rate increased [Unknown]

NARRATIVE: CASE EVENT DATE: 20150411
